FAERS Safety Report 17911645 (Version 2)
Quarter: 2020Q3

REPORT INFORMATION
  Report Type: Spontaneous
  Country: US (occurrence: US)
  Receive Date: 20200618
  Receipt Date: 20200721
  Transmission Date: 20201103
  Serious: No
  Sender: FDA-Public Use
  Company Number: US-PFIZER INC-2020236507

PATIENT
  Age: 38 Year
  Sex: Female

DRUGS (1)
  1. XELJANZ XR [Suspect]
     Active Substance: TOFACITINIB CITRATE
     Indication: RHEUMATOID ARTHRITIS
     Dosage: 11 MG, DAILY
     Route: 048
     Dates: start: 20200612

REACTIONS (14)
  - Peripheral swelling [Unknown]
  - Pain in extremity [Unknown]
  - Pain [Unknown]
  - Joint instability [Unknown]
  - Gait disturbance [Unknown]
  - Joint swelling [Unknown]
  - Drug ineffective [Unknown]
  - Stress [Unknown]
  - Depression [Unknown]
  - Weight decreased [Unknown]
  - Arthralgia [Unknown]
  - Arthropathy [Unknown]
  - Movement disorder [Unknown]
  - Feeling abnormal [Unknown]
